FAERS Safety Report 16450953 (Version 2)
Quarter: 2019Q3

REPORT INFORMATION
  Report Type: Spontaneous
  Country: JP (occurrence: JP)
  Receive Date: 20190619
  Receipt Date: 20190722
  Transmission Date: 20191004
  Serious: No
  Sender: FDA-Public Use
  Company Number: JP-ELI_LILLY_AND_COMPANY-JP201906005599

PATIENT
  Age: 70 Year
  Sex: Male

DRUGS (8)
  1. IRRIBOW [Concomitant]
     Active Substance: RAMOSETRON HYDROCHLORIDE
  2. HALRACK [Concomitant]
     Active Substance: TRIAZOLAM
  3. HARNAL [Concomitant]
     Active Substance: TAMSULOSIN HYDROCHLORIDE
  4. ZALUTIA [Suspect]
     Active Substance: TADALAFIL
     Indication: BENIGN PROSTATIC HYPERPLASIA
     Dosage: 5 MG, DAILY
     Route: 048
  5. CERCINE [Concomitant]
     Active Substance: DIAZEPAM
  6. COLONEL [Concomitant]
     Active Substance: CALCIUM POLYCARBOPHIL
  7. FLUNITRAZEPAM [Concomitant]
     Active Substance: FLUNITRAZEPAM
  8. ZALUTIA [Suspect]
     Active Substance: TADALAFIL
     Dosage: 2.5 MG, QOD
     Route: 048

REACTIONS (4)
  - Inappropriate schedule of product administration [Not Recovered/Not Resolved]
  - Myalgia [Recovered/Resolved]
  - Asthenopia [Recovering/Resolving]
  - Dry eye [Recovering/Resolving]
